FAERS Safety Report 12147176 (Version 3)
Quarter: 2016Q2

REPORT INFORMATION
  Report Type: Spontaneous
  Country: US (occurrence: US)
  Receive Date: 20160304
  Receipt Date: 20160613
  Transmission Date: 20160815
  Serious: No
  Sender: FDA-Public Use
  Company Number: US-PFIZER INC-2016078565

PATIENT
  Age: 50 Year
  Sex: Female
  Weight: 68 kg

DRUGS (3)
  1. ZITHROMAX [Suspect]
     Active Substance: AZITHROMYCIN DIHYDRATE
     Indication: WHEEZING
     Dosage: 250 MG, 1X/DAY 250 MG, LITTLE PILL, 1 FOR NEXT FOUR DAYS
     Route: 048
     Dates: start: 20160122, end: 20160125
  2. PREDNISONE. [Concomitant]
     Active Substance: PREDNISONE
     Dosage: UNK
     Dates: start: 20160121, end: 20160122
  3. ZITHROMAX [Suspect]
     Active Substance: AZITHROMYCIN DIHYDRATE
     Indication: COUGH
     Dosage: 500 MG, (250 MG, LITTLE PILL, 2 ON THE FIRST DAY)
     Route: 048
     Dates: start: 20160121, end: 20160121

REACTIONS (5)
  - Nervousness [Recovered/Resolved]
  - Hypertension [Recovered/Resolved]
  - Tinnitus [Not Recovered/Not Resolved]
  - Palpitations [Recovered/Resolved]
  - Dizziness [Recovered/Resolved]

NARRATIVE: CASE EVENT DATE: 20160124
